FAERS Safety Report 4927636-3 (Version None)
Quarter: 2006Q1

REPORT INFORMATION
  Report Type: 
  Country: None (occurrence: None)
  Receive Date: 20060228
  Receipt Date: 20051004
  Transmission Date: 20060701
  Serious: Yes (Hospitalization, Other)
  Sender: FDA-Public Use
  Company Number: US-MERCK-0510USA03288

PATIENT
  Age: 54 Year
  Sex: Male
  Weight: 104 kg

DRUGS (7)
  1. VIOXX [Suspect]
     Indication: BACK PAIN
     Route: 048
  2. FLOVENT [Concomitant]
     Route: 065
  3. ATENOLOL [Concomitant]
     Route: 065
  4. COUMADIN [Concomitant]
     Route: 065
  5. NITROGLYCERIN [Concomitant]
     Route: 065
  6. PIOGLITAZONE HYDROCHLORIDE [Concomitant]
     Route: 065
  7. LASIX [Concomitant]
     Route: 065

REACTIONS (8)
  - CARDIAC FAILURE CONGESTIVE [None]
  - CEREBROVASCULAR ACCIDENT [None]
  - CONDITION AGGRAVATED [None]
  - DIABETES MELLITUS NON-INSULIN-DEPENDENT [None]
  - DYSPNOEA [None]
  - DYSPNOEA PAROXYSMAL NOCTURNAL [None]
  - PULMONARY HILUM MASS [None]
  - SHOULDER PAIN [None]
